FAERS Safety Report 15813576 (Version 4)
Quarter: 2025Q3

REPORT INFORMATION
  Report Type: Report from Study
  Country: US (occurrence: US)
  Receive Date: 20190111
  Receipt Date: 20250717
  Transmission Date: 20251021
  Serious: Yes (Other)
  Sender: TAKEDA
  Company Number: US-TAKEDA-2018TUS001723

PATIENT
  Age: 66 Year
  Sex: Female

DRUGS (6)
  1. VEDOLIZUMAB [Suspect]
     Active Substance: VEDOLIZUMAB
     Indication: Colitis ulcerative
  2. VEDOLIZUMAB [Suspect]
     Active Substance: VEDOLIZUMAB
     Indication: Colitis ulcerative
     Dosage: 108 MILLIGRAM, Q2WEEKS
  3. VEDOLIZUMAB [Suspect]
     Active Substance: VEDOLIZUMAB
  4. MECLIZINE [Concomitant]
     Active Substance: MECLIZINE HYDROCHLORIDE
  5. PENTASA [Concomitant]
     Active Substance: MESALAMINE
  6. LIALDA [Concomitant]
     Active Substance: MESALAMINE

REACTIONS (6)
  - Wrist fracture [Unknown]
  - Large intestinal ulcer [Unknown]
  - Multiple sclerosis [Unknown]
  - Joint injury [Not Recovered/Not Resolved]
  - Balance disorder [Unknown]
  - Product administration error [Unknown]

NARRATIVE: CASE EVENT DATE: 20170116
